FAERS Safety Report 15658190 (Version 1)
Quarter: 2018Q4

REPORT INFORMATION
  Report Type: Spontaneous
  Country: US (occurrence: US)
  Receive Date: 20181126
  Receipt Date: 20181126
  Transmission Date: 20190205
  Serious: Yes (Hospitalization)
  Sender: FDA-Public Use
  Company Number: US-PFIZER INC-2018481027

PATIENT
  Age: 62 Year
  Sex: Male

DRUGS (1)
  1. AXITINIB [Suspect]
     Active Substance: AXITINIB
     Indication: METASTATIC RENAL CELL CARCINOMA
     Dosage: UNK

REACTIONS (2)
  - Pneumatosis intestinalis [Recovering/Resolving]
  - Necrotising colitis [Recovering/Resolving]
